FAERS Safety Report 6740216-2 (Version None)
Quarter: 2010Q2

REPORT INFORMATION
  Report Type: 
  Country: None (occurrence: None)
  Receive Date: 20100525
  Receipt Date: 20100514
  Transmission Date: 20101027
  Serious: Yes (Hospitalization, Disabling)
  Sender: FDA-Public Use
  Company Number: B0621424A

PATIENT
  Sex: Male

DRUGS (3)
  1. PAROXETINE HCL [Suspect]
     Indication: NEUROSIS
     Dosage: 10MG PER DAY
     Route: 048
     Dates: start: 20070724, end: 20071127
  2. DEPAS [Concomitant]
     Indication: NEUROSIS
     Dosage: .5MG PER DAY
     Route: 048
  3. DILTIAZEM HCL [Concomitant]
     Indication: ANGINA PECTORIS
     Dosage: 200MG PER DAY
     Route: 048
     Dates: end: 20070817

REACTIONS (2)
  - GAIT DISTURBANCE [None]
  - PARKINSONISM [None]
